FAERS Safety Report 11417115 (Version 2)
Quarter: 2015Q4

REPORT INFORMATION
  Report Type: Spontaneous
  Country: GR (occurrence: GR)
  Receive Date: 20150825
  Receipt Date: 20151125
  Transmission Date: 20160304
  Serious: Yes (Other)
  Sender: FDA-Public Use
  Company Number: GR-JNJFOC-20150817848

PATIENT
  Age: 66 Year
  Sex: Female

DRUGS (2)
  1. T4 [Concomitant]
     Active Substance: LEVOTHYROXINE
     Indication: AUTOIMMUNE THYROIDITIS
     Route: 065
  2. SIMPONI [Suspect]
     Active Substance: GOLIMUMAB
     Indication: RHEUMATOID ARTHRITIS
     Dosage: 50MG/0.5ML
     Route: 058
     Dates: start: 20150730

REACTIONS (1)
  - Diaphragmatic hernia [Not Recovered/Not Resolved]
